FAERS Safety Report 11757666 (Version 3)
Quarter: 2015Q4

REPORT INFORMATION
  Report Type: Report from Study
  Country: US (occurrence: US)
  Receive Date: 20151120
  Receipt Date: 20151210
  Transmission Date: 20160304
  Serious: Yes (Other)
  Sender: FDA-Public Use
  Company Number: US-BAYER-2015-466853

PATIENT
  Age: 36 Year
  Sex: Female
  Weight: 53.97 kg

DRUGS (2)
  1. MIRENA [Suspect]
     Active Substance: LEVONORGESTREL
     Indication: CONTRACEPTION
     Dosage: 20 MCG/24HR, CONT
     Route: 015
     Dates: start: 201503, end: 201509
  2. ORTHO CYCLEN [Concomitant]
     Active Substance: ETHINYL ESTRADIOL\NORGESTIMATE
     Dosage: UNK
     Route: 048

REACTIONS (7)
  - Ruptured ectopic pregnancy [None]
  - Pelvic pain [None]
  - Haemorrhage in pregnancy [None]
  - Ectopic pregnancy with contraceptive device [None]
  - Abdominal pain [None]
  - Drug ineffective [None]
  - Hypomenorrhoea [None]

NARRATIVE: CASE EVENT DATE: 201509
